FAERS Safety Report 25236487 (Version 1)
Quarter: 2025Q2

REPORT INFORMATION
  Report Type: Spontaneous
  Country: CN (occurrence: CN)
  Receive Date: 20250424
  Receipt Date: 20250424
  Transmission Date: 20250717
  Serious: Yes (Other)
  Sender: PFIZER
  Company Number: CN-PFIZER INC-PV202500048212

PATIENT
  Age: 68 Year
  Sex: Female

DRUGS (2)
  1. LINEZOLID [Suspect]
     Active Substance: LINEZOLID
     Dosage: 600 MG, Q12H
     Route: 048
     Dates: start: 20250410, end: 20250413
  2. DYPHYLLINE [Concomitant]
     Active Substance: DYPHYLLINE
     Dosage: 0.25 G, 1X/DAY
     Route: 041
     Dates: start: 20250221, end: 20250413

REACTIONS (4)
  - Hypersensitivity [Recovered/Resolved]
  - Rash erythematous [Unknown]
  - Dyspnoea [Unknown]
  - Pruritus [Unknown]

NARRATIVE: CASE EVENT DATE: 20250401
